FAERS Safety Report 5737912-2 (Version None)
Quarter: 2008Q2

REPORT INFORMATION
  Report Type: 
  Country: None (occurrence: None)
  Receive Date: 20080512
  Receipt Date: 20080512
  Transmission Date: 20081010
  Serious: No
  Sender: FDA-Public Use
  Company Number: None

PATIENT
  Age: 59 Year
  Sex: Male
  Weight: 75.2 kg

DRUGS (1)
  1. CETUXIMAB [Suspect]
     Indication: CHEMOTHERAPY
     Dosage: 800MG ONCE IV
     Route: 042
     Dates: start: 20080225, end: 20080225

REACTIONS (5)
  - COUGH [None]
  - HYPERHIDROSIS [None]
  - HYPOTENSION [None]
  - OXYGEN SATURATION DECREASED [None]
  - WHEEZING [None]
